FAERS Safety Report 13295402 (Version 1)
Quarter: 2017Q1

REPORT INFORMATION
  Report Type: Spontaneous
  Country: US (occurrence: US)
  Receive Date: 20170303
  Receipt Date: 20170303
  Transmission Date: 20170428
  Serious: Yes (Other)
  Sender: FDA-Public Use
  Company Number: US-JNJFOC-20161221875

PATIENT
  Sex: Female

DRUGS (32)
  1. ASPIRIN. [Suspect]
     Active Substance: ASPIRIN
     Indication: PRODUCT USED FOR UNKNOWN INDICATION
     Route: 048
  2. HYDROCODONE/ACETAMINOPHEN [Concomitant]
     Active Substance: ACETAMINOPHEN\HYDROCODONE
     Indication: PAIN
     Dosage: 5MG-325 MG TABLET (1 TAB ORALLY EVERY 6 HOURS AS NEEDED FOR PAIN.
     Route: 048
  3. CHOLECALCIFEROL [Concomitant]
     Active Substance: CHOLECALCIFEROL
     Dosage: 600 MG (1500 MG)-200 UNIT 600 MG (1500 MG-200 UNIT TABLET 1 TABLET BY MOUTH EVERY DAY
     Route: 048
  4. CRANBERRY. [Concomitant]
     Active Substance: CRANBERRY
     Route: 048
  5. SPIRIVA [Concomitant]
     Active Substance: TIOTROPIUM BROMIDE MONOHYDRATE
     Route: 048
  6. XARELTO [Suspect]
     Active Substance: RIVAROXABAN
     Indication: PRODUCT USED FOR UNKNOWN INDICATION
     Route: 048
  7. EPOETIN [Concomitant]
     Active Substance: ERYTHROPOIETIN
     Dosage: 40,000 UNIT/ML SOLUTION
     Route: 058
  8. LASIX [Concomitant]
     Active Substance: FUROSEMIDE
     Route: 048
  9. LACTOBACILLUS ACIDOPHILUS [Concomitant]
     Active Substance: LACTOBACILLUS ACIDOPHILUS
     Route: 048
  10. XARELTO [Suspect]
     Active Substance: RIVAROXABAN
     Indication: PRODUCT USED FOR UNKNOWN INDICATION
     Dosage: 1TABLET EVERY OTHER DAY
     Route: 048
  11. LASIX [Concomitant]
     Active Substance: FUROSEMIDE
     Dosage: TABLET ORALLY EVERY MORNING
     Route: 048
  12. NYSTATIN. [Concomitant]
     Active Substance: NYSTATIN
     Route: 048
  13. ADVAIR HFA [Concomitant]
     Active Substance: FLUTICASONE PROPIONATE\SALMETEROL XINAFOATE
     Dosage: 250 MCG-50 MCG/DOSE) 1 PUFF EVERY 12 HOURS
     Route: 065
  14. CLINDAMYCIN. [Concomitant]
     Active Substance: CLINDAMYCIN
     Dosage: 300 MG CAPSULE 2 CAPSULES PER DAY AS PER ADMINISTRATION INSTRUCTIONS.
     Route: 048
  15. FLONASE [Concomitant]
     Active Substance: FLUTICASONE PROPIONATE
     Dosage: 50MCG ACTUATION SPRAY, SUSPENSION 2 SPRAY INSTILL BY SPRAY ONCE DAILY AS NEEDED.
     Route: 045
  16. BOSULIF [Concomitant]
     Active Substance: BOSUTINIB MONOHYDRATE
     Route: 048
  17. SPIRONOLACTONE. [Concomitant]
     Active Substance: SPIRONOLACTONE
     Route: 048
  18. EPOGEN [Concomitant]
     Active Substance: ERYTHROPOIETIN
     Dosage: 40,000 UNIT/ML
     Route: 042
  19. FUROSEMIDE. [Concomitant]
     Active Substance: FUROSEMIDE
     Route: 048
  20. BUDESONIDE. [Concomitant]
     Active Substance: BUDESONIDE
     Dosage: 2 INHALATION INHALE BY PUFF EVERY 12 HOURS
     Route: 065
  21. ALBUTEROL. [Concomitant]
     Active Substance: ALBUTEROL
     Dosage: IINHALE 2 PUFFS IN EVERY 4 HOURS AS NEEDED
     Route: 065
  22. DASATINIB [Concomitant]
     Active Substance: DASATINIB
     Route: 048
  23. LANTUS [Concomitant]
     Active Substance: INSULIN GLARGINE
     Dosage: 60 UNITS DAILY
     Route: 058
  24. XARELTO [Suspect]
     Active Substance: RIVAROXABAN
     Indication: PRODUCT USED FOR UNKNOWN INDICATION
     Dosage: 1 TABLET BY MOUTH EVERY OTHER DAY
     Route: 048
  25. TEMOVATE [Concomitant]
     Active Substance: CLOBETASOL PROPIONATE
     Dosage: APPLY ON EFFECTED AREA
     Route: 061
  26. SPRYCEL [Concomitant]
     Active Substance: DASATINIB
     Dosage: TAKE 100 MG DAILY EXCEPT 50 MG EVERY 3 RD DAY
     Route: 065
  27. GLIMEPIRIDE. [Concomitant]
     Active Substance: GLIMEPIRIDE
     Route: 048
  28. KEPPRA [Concomitant]
     Active Substance: LEVETIRACETAM
     Route: 048
  29. ALDACTONE [Concomitant]
     Active Substance: SPIRONOLACTONE
     Route: 048
  30. ALDACTONE [Concomitant]
     Active Substance: SPIRONOLACTONE
     Route: 048
  31. LOPRESSOR [Concomitant]
     Active Substance: METOPROLOL TARTRATE
     Dosage: 1.5 TABLET EVRY 12 HOURS BY MOUTH
     Route: 048
  32. VITAMIN C [Concomitant]
     Active Substance: ASCORBIC ACID

REACTIONS (2)
  - Medication error [Unknown]
  - Haemorrhage [Unknown]
